FAERS Safety Report 24217892 (Version 1)
Quarter: 2024Q3

REPORT INFORMATION
  Report Type: Report from Study
  Country: US (occurrence: None)
  Receive Date: 20240816
  Receipt Date: 20240816
  Transmission Date: 20241016
  Serious: Yes (Death, Life-Threatening, Other)
  Sender: ASTRAZENECA
  Company Number: 2024A150581

PATIENT
  Age: 85 Year
  Sex: Female

DRUGS (1)
  1. ANDEXANET ALFA [Suspect]
     Active Substance: ANDEXANET ALFA
     Dosage: BOLUS: 400 MG (30 MG/MIN), INFUSION 4 MG/MIN (120 MIN)
     Route: 042

REACTIONS (2)
  - Haemorrhage intracranial [Fatal]
  - Ischaemic stroke [Unknown]
